FAERS Safety Report 9748003 (Version 2)
Quarter: 2013Q4

REPORT INFORMATION
  Report Type: Spontaneous
  Country: US (occurrence: US)
  Receive Date: 20131212
  Receipt Date: 20131212
  Transmission Date: 20140711
  Serious: Yes (Other)
  Sender: FDA-Public Use
  Company Number: US-TEVA-389095USA

PATIENT
  Age: 51 Year
  Sex: Female
  Weight: 53.57 kg

DRUGS (7)
  1. PARAGARD 380A [Suspect]
     Indication: CONTRACEPTION
     Route: 015
     Dates: end: 20120104
  2. METHIMAZOLE [Concomitant]
  3. ATENOLOL [Concomitant]
  4. GLUCOSAMINE [Concomitant]
  5. PRENATAL VITAMINS [Concomitant]
  6. ZYRTEC [Concomitant]
  7. INHALER [Concomitant]
     Dosage: PRN

REACTIONS (1)
  - Medical device complication [Not Recovered/Not Resolved]
